FAERS Safety Report 5381790-0 (Version None)
Quarter: 2007Q3

REPORT INFORMATION
  Report Type: 
  Country: None (occurrence: None)
  Receive Date: 20070705
  Receipt Date: 20070705
  Transmission Date: 20080115
  Serious: Yes (Other)
  Sender: FDA-Public Use
  Company Number: None

PATIENT
  Age: 57 Year
  Sex: Male

DRUGS (6)
  1. REVLIMID [Suspect]
     Indication: NON-HODGKIN'S LYMPHOMA
     Dosage: 25MG TOTAL DAILY PO
     Route: 048
  2. REVLIMID [Suspect]
     Indication: NON-HODGKIN'S LYMPHOMA
     Dosage: 30MG TOTAL DAILY PO
     Route: 048
  3. PROAIR HFA [Concomitant]
  4. OMEPRAZOLE [Concomitant]
  5. ADVAIR DISKUS 100/50 [Concomitant]
  6. QVAR 40 [Concomitant]

REACTIONS (1)
  - MUSCLE SPASMS [None]
